FAERS Safety Report 9817583 (Version 1)
Quarter: 2013Q4

REPORT INFORMATION
  Report Type: Spontaneous
  Country: None (occurrence: None)
  Receive Date: 20131223
  Receipt Date: 20131223
  Transmission Date: 20140711
  Serious: No
  Sender: FDA-Public Use
  Company Number: 217895

PATIENT
  Sex: Male

DRUGS (2)
  1. PICATO [Suspect]
     Indication: SKIN CANCER
     Route: 061
     Dates: start: 20120602
  2. PICATO [Suspect]
     Indication: PROPHYLAXIS
     Route: 061
     Dates: start: 20120602

REACTIONS (4)
  - Application site burn [None]
  - Application site erythema [None]
  - Rash macular [None]
  - Incorrect drug administration duration [None]
